FAERS Safety Report 6129156-X (Version None)
Quarter: 2009Q1

REPORT INFORMATION
  Report Type: 
  Country: None (occurrence: None)
  Receive Date: 20090324
  Receipt Date: 20090317
  Transmission Date: 20090719
  Serious: Yes (Death, Hospitalization, Other)
  Sender: FDA-Public Use
  Company Number: US-CELGENEUS-163-21880-08110255

PATIENT
  Sex: Female
  Weight: 55.7 kg

DRUGS (23)
  1. REVLIMID [Suspect]
     Route: 048
     Dates: start: 20081020, end: 20081103
  2. DEXAMETHASONE [Suspect]
     Route: 048
     Dates: start: 20081020, end: 20081020
  3. DEXAMETHASONE [Suspect]
     Route: 048
     Dates: start: 20081027, end: 20081027
  4. DEXAMETHASONE [Suspect]
     Route: 048
     Dates: start: 20081103, end: 20081103
  5. ALKERAN [Suspect]
     Route: 048
     Dates: start: 20081020, end: 20081023
  6. AMBIEN [Concomitant]
     Indication: DRUG USE FOR UNKNOWN INDICATION
     Route: 048
  7. COLACE [Concomitant]
     Indication: CONSTIPATION
     Route: 048
  8. LASIX [Concomitant]
     Indication: PLEURAL EFFUSION
     Route: 048
     Dates: start: 20081101
  9. LASIX [Concomitant]
     Route: 048
     Dates: start: 20081101
  10. ATIVAN [Concomitant]
     Indication: ANXIETY
     Dosage: 1-2 TABLETS
     Route: 048
  11. ATIVAN [Concomitant]
     Indication: RESTLESSNESS
  12. PRILOSEC [Concomitant]
     Indication: DRUG USE FOR UNKNOWN INDICATION
     Route: 048
  13. CENTRUM [Concomitant]
     Indication: DRUG USE FOR UNKNOWN INDICATION
     Route: 048
  14. CALCIUM VITAMIN D [Concomitant]
     Indication: DRUG USE FOR UNKNOWN INDICATION
     Dosage: 600MG-200 UNITS
     Route: 048
  15. ASPIRIN [Concomitant]
     Indication: DRUG USE FOR UNKNOWN INDICATION
     Route: 048
  16. BENADRYL [Concomitant]
     Indication: RASH
     Route: 048
  17. K-DUR [Concomitant]
     Indication: DRUG USE FOR UNKNOWN INDICATION
     Route: 048
  18. LANSOPRAZOLE [Concomitant]
     Indication: DRUG USE FOR UNKNOWN INDICATION
     Route: 048
  19. METOLAZONE [Concomitant]
     Indication: DRUG USE FOR UNKNOWN INDICATION
     Route: 048
  20. MIDODRINE [Concomitant]
     Indication: DRUG USE FOR UNKNOWN INDICATION
     Route: 048
  21. MULTI-VITAMINS [Concomitant]
     Indication: DRUG USE FOR UNKNOWN INDICATION
     Route: 065
  22. SENNA [Concomitant]
     Indication: DRUG USE FOR UNKNOWN INDICATION
     Route: 048
  23. WARFARIN SODIUM [Concomitant]
     Indication: DRUG USE FOR UNKNOWN INDICATION
     Route: 065

REACTIONS (5)
  - ASTHENIA [None]
  - ATRIAL FIBRILLATION [None]
  - CARDIAC FAILURE [None]
  - FATIGUE [None]
  - INFECTION [None]
